FAERS Safety Report 18409311 (Version 2)
Quarter: 2020Q4

REPORT INFORMATION
  Report Type: Spontaneous
  Country: FR (occurrence: FR)
  Receive Date: 20201021
  Receipt Date: 20201023
  Transmission Date: 20210114
  Serious: Yes (Other)
  Sender: FDA-Public Use
  Company Number: FR-TEVA-2020-FR-1839699

PATIENT
  Age: 49 Year
  Sex: Male
  Weight: 82 kg

DRUGS (6)
  1. LOVENOX [Concomitant]
     Active Substance: ENOXAPARIN SODIUM
     Dosage: 0.4 ML
     Route: 058
     Dates: start: 202007
  2. LORAZEPAM. [Concomitant]
     Active Substance: LORAZEPAM
     Dosage: 2.5 MG
     Route: 048
     Dates: start: 20200319
  3. CLOZAPINE. [Suspect]
     Active Substance: CLOZAPINE
     Indication: SCHIZOPHRENIA
     Dosage: 300 MG
     Route: 048
     Dates: start: 20200828, end: 20200922
  4. RISPERIDONE. [Concomitant]
     Active Substance: RISPERIDONE
     Dosage: 2 MG
     Route: 048
     Dates: start: 20200319
  5. TERCIAN [Concomitant]
     Active Substance: CYAMEMAZINE
     Dosage: 25 MG
     Route: 048
     Dates: start: 20200319
  6. PENTASA [Concomitant]
     Active Substance: MESALAMINE
     Dosage: 2 G
     Route: 048
     Dates: start: 20200319

REACTIONS (1)
  - Hepatocellular injury [Recovering/Resolving]

NARRATIVE: CASE EVENT DATE: 20200914
